FAERS Safety Report 23174930 (Version 1)
Quarter: 2023Q4

REPORT INFORMATION
  Report Type: Spontaneous
  Country: US (occurrence: US)
  Receive Date: 20231112
  Receipt Date: 20231112
  Transmission Date: 20240110
  Serious: Yes (Other)
  Sender: FDA-Public Use
  Company Number: US-SANDOZ-SDZ2023US052582

PATIENT
  Age: 71 Year
  Sex: Male

DRUGS (2)
  1. IBUPROFEN [Suspect]
     Active Substance: IBUPROFEN
     Indication: Abdominal pain
     Route: 065
  2. IBUPROFEN [Suspect]
     Active Substance: IBUPROFEN
     Indication: Vitiligo

REACTIONS (5)
  - Immune thrombocytopenia [Unknown]
  - Acute hepatic failure [Recovering/Resolving]
  - Autoimmune haemolytic anaemia [Unknown]
  - Tubulointerstitial nephritis [Unknown]
  - Alanine aminotransferase increased [Unknown]
